FAERS Safety Report 7570329-7 (Version None)
Quarter: 2011Q2

REPORT INFORMATION
  Report Type: 
  Country: None (occurrence: None)
  Receive Date: 20110622
  Receipt Date: 20110622
  Transmission Date: 20111010
  Serious: Yes (Hospitalization)
  Sender: FDA-Public Use
  Company Number: None

PATIENT
  Sex: Female
  Weight: 63.5 kg

DRUGS (2)
  1. TAXOL [Suspect]
     Dosage: 228 MG
     Dates: end: 20100524
  2. CARBOPLATIN [Suspect]
     Dosage: 480 MG
     Dates: end: 20100524

REACTIONS (2)
  - ELECTROLYTE IMBALANCE [None]
  - PAIN IN EXTREMITY [None]
